FAERS Safety Report 21971955 (Version 1)
Quarter: 2023Q1

REPORT INFORMATION
  Report Type: Report from Study
  Country: JP (occurrence: JP)
  Receive Date: 20230209
  Receipt Date: 20230209
  Transmission Date: 20230418
  Serious: Yes (Other)
  Sender: FDA-Public Use
  Company Number: JP-Accord-299501

PATIENT

DRUGS (2)
  1. FLUOROURACIL [Suspect]
     Active Substance: FLUOROURACIL
     Indication: Nasopharyngeal cancer
     Dosage: INTRAVENOUSLY ADMINISTERED 5-FU AT A DOSE OF 800 MG/M2/DAY FOR 5 DAYS (DAY 1-5)
     Route: 042
  2. CISPLATIN [Suspect]
     Active Substance: CISPLATIN
     Indication: Nasopharyngeal cancer
     Dosage: 50 MG/M2/DAY FOR 2 DAYS (DAY 6-7)
     Route: 042

REACTIONS (1)
  - Renal failure [Unknown]
